FAERS Safety Report 10416163 (Version 3)
Quarter: 2014Q4

REPORT INFORMATION
  Report Type: Spontaneous
  Country: US (occurrence: None)
  Receive Date: 20140604
  Receipt Date: 20141205
  Transmission Date: 20150528
  Serious: Yes (Other)
  Sender: FDA-Public Use
  Company Number: 163-POMAL-14040642

PATIENT
  Age: 52 Year
  Sex: Male
  Weight: 79.4 kg

DRUGS (11)
  1. MELATONIN [Concomitant]
     Active Substance: MELATONIN
  2. MVI [Concomitant]
     Active Substance: VITAMINS
  3. PRILOSEC (OMEPRAZOLE) [Concomitant]
     Active Substance: OMEPRAZOLE MAGNESIUM
  4. TRAMADOL [Concomitant]
     Active Substance: TRAMADOL
  5. COMPAZINE [Concomitant]
     Active Substance: PROCHLORPERAZINE MALEATE
  6. TYLENOL [Concomitant]
     Active Substance: ACETAMINOPHEN
  7. NEURONTIN [Concomitant]
     Active Substance: GABAPENTIN
  8. POMALYST [Suspect]
     Active Substance: POMALIDOMIDE
     Indication: PLASMA CELL MYELOMA
     Dosage: 4 MG, 21 IN 21 D
     Route: 048
     Dates: start: 20140122
  9. ACYCLOVIR (ACICLOVIR) (ACICLOVIR) [Concomitant]
     Active Substance: ACYCLOVIR
  10. MOUTHWASH (POVIDONE-IODINE) [Concomitant]
  11. ASPIRIN. [Concomitant]
     Active Substance: ASPIRIN

REACTIONS (5)
  - Chills [None]
  - Plasma cell myeloma [None]
  - Pyrexia [None]
  - Pain [None]
  - Malaise [None]

NARRATIVE: CASE EVENT DATE: 2014
